FAERS Safety Report 8346914-1 (Version None)
Quarter: 2012Q2

REPORT INFORMATION
  Report Type: 
  Country: None (occurrence: None)
  Receive Date: 20120509
  Receipt Date: 20120504
  Transmission Date: 20120825
  Serious: Yes (Death, Hospitalization, Congenital Anomaly, Other)
  Sender: FDA-Public Use
  Company Number: GXKR2012DE001647

PATIENT

DRUGS (9)
  1. CETIRIZINE [Concomitant]
     Indication: HYPERSENSITIVITY
     Route: 064
  2. EBENOL [Concomitant]
     Indication: HYPERSENSITIVITY
     Route: 064
     Dates: start: 19111114, end: 20101117
  3. EMSER SALT [Concomitant]
     Indication: SELF-MEDICATION
     Route: 064
     Dates: start: 20101220, end: 20101226
  4. LEVOTHYROXINE SODIUM [Concomitant]
     Indication: HYPOTHYROIDISM
     Dosage: MATERNAL DOSE: 100 UG, DAILY
     Route: 064
     Dates: start: 20100913, end: 20110626
  5. FOLIC ACID [Concomitant]
     Indication: PROPHYLAXIS OF NEURAL TUBE DEFECT
     Dosage: MATERNAL DOSE: 0.8 MG, DAILY
     Route: 064
     Dates: start: 20100919, end: 20110404
  6. APSOMOL [Concomitant]
     Indication: BRONCHITIS
     Route: 064
     Dates: start: 20101220, end: 20101225
  7. METFORMIN HCL [Suspect]
     Indication: GLUCOSE TOLERANCE IMPAIRED
     Route: 064
  8. UTROGEST [Concomitant]
     Indication: POLYCYSTIC OVARIES
     Dosage: MATERNAL DOSE: 100 MG, DAILY
     Route: 064
     Dates: start: 20100912, end: 20101114
  9. KADEFUNGIN [Concomitant]
     Indication: FUNGAL INFECTION
     Route: 064

REACTIONS (5)
  - BRADYCARDIA [None]
  - BLOOD PRESSURE DECREASED [None]
  - FOETAL EXPOSURE DURING PREGNANCY [None]
  - TURNER'S SYNDROME [None]
  - HYPOPLASTIC LEFT HEART SYNDROME [None]
